FAERS Safety Report 9258856 (Version 4)
Quarter: 2014Q2

REPORT INFORMATION
  Report Type: Spontaneous
  Country: US (occurrence: US)
  Receive Date: 20130426
  Receipt Date: 20140501
  Transmission Date: 20141212
  Serious: Yes (Other)
  Sender: FDA-Public Use
  Company Number: US-GLAXOSMITHKLINE-A1021373A

PATIENT
  Age: 53 Year
  Sex: Female

DRUGS (3)
  1. FLOLAN [Suspect]
     Indication: COR PULMONALE CHRONIC
     Dosage: 28.5NGKM CONTINUOUS
     Route: 042
     Dates: start: 20041021
  2. COUMADIN [Concomitant]
  3. REVATIO [Concomitant]

REACTIONS (3)
  - Device related infection [Recovered/Resolved]
  - Central venous catheterisation [Recovered/Resolved]
  - Medical device complication [Recovered/Resolved]
